FAERS Safety Report 23651231 (Version 1)
Quarter: 2024Q1

REPORT INFORMATION
  Report Type: Report from Study
  Country: CH (occurrence: CH)
  Receive Date: 20240320
  Receipt Date: 20240320
  Transmission Date: 20240410
  Serious: Yes (Other)
  Sender: FDA-Public Use
  Company Number: CH-ABBVIE-5681834

PATIENT
  Sex: Male

DRUGS (4)
  1. CARBIDOPA\LEVODOPA [Suspect]
     Active Substance: CARBIDOPA\LEVODOPA
     Indication: Parkinson^s disease
     Route: 050
     Dates: start: 20180730
  2. CARBIDOPA\LEVODOPA [Suspect]
     Active Substance: CARBIDOPA\LEVODOPA
     Dosage: MD: 7.5 ML, CRD: 2.9 ML/H, ED: 1.7 ML?FREQUENCY TEXT: 16H THERAPY
     Route: 050
     Dates: start: 20230414, end: 20230530
  3. CARBIDOPA\LEVODOPA [Suspect]
     Active Substance: CARBIDOPA\LEVODOPA
     Dosage: MD: 7.5 ML, CRD: 3.1 ML/H, ED: 1.7 ML?FREQUENCY TEXT: 16H THERAPY
     Route: 050
     Dates: start: 20230531, end: 20230716
  4. CARBIDOPA\LEVODOPA [Suspect]
     Active Substance: CARBIDOPA\LEVODOPA
     Dosage: MD: 7.5 ML, CRD: 3.0 ML/H, ED: 1.7 ML?FREQUENCY TEXT: 16H THERAPY
     Route: 050
     Dates: start: 20230717

REACTIONS (3)
  - Malignant melanoma [Recovered/Resolved]
  - Bradykinesia [Recovering/Resolving]
  - On and off phenomenon [Not Recovered/Not Resolved]
